FAERS Safety Report 5891830-8 (Version None)
Quarter: 2008Q3

REPORT INFORMATION
  Report Type: 
  Country: None (occurrence: None)
  Receive Date: 20080922
  Receipt Date: 20080912
  Transmission Date: 20090109
  Serious: Yes (Other)
  Sender: FDA-Public Use
  Company Number: BR-ABBOTT-08P-020-0464192-00

PATIENT
  Sex: Male
  Weight: 80 kg

DRUGS (3)
  1. HUMIRA [Suspect]
     Indication: RHEUMATOID ARTHRITIS
     Route: 058
     Dates: start: 20080101, end: 20080707
  2. LEFLUNOMIDE [Concomitant]
     Indication: RHEUMATOID ARTHRITIS
     Route: 048
     Dates: start: 20080101, end: 20080707
  3. CORTISONE [Concomitant]
     Indication: RHEUMATOID ARTHRITIS
     Route: 048
     Dates: start: 20080101, end: 20080707

REACTIONS (6)
  - ARTHRALGIA [None]
  - DECREASED IMMUNE RESPONSIVENESS [None]
  - DISSEMINATED TUBERCULOSIS [None]
  - HEPATITIS [None]
  - HYPERHIDROSIS [None]
  - WEIGHT DECREASED [None]
